FAERS Safety Report 7153159-X (Version None)
Quarter: 2010Q4

REPORT INFORMATION
  Report Type: 
  Country: None (occurrence: None)
  Receive Date: 20101130
  Receipt Date: 20101118
  Transmission Date: 20110411
  Serious: Yes (Other)
  Sender: FDA-Public Use
  Company Number: 021626

PATIENT
  Sex: Female

DRUGS (2)
  1. KEPPRA [Suspect]
     Dosage: 250 MG BID
     Dates: start: 20050101, end: 20101103
  2. LAMICTAL [Concomitant]

REACTIONS (4)
  - ANXIETY [None]
  - CEREBROVASCULAR ACCIDENT [None]
  - CONVULSION [None]
  - TREMOR [None]
